FAERS Safety Report 7756558-8 (Version None)
Quarter: 2011Q3

REPORT INFORMATION
  Report Type: 
  Country: None (occurrence: None)
  Receive Date: 20110916
  Receipt Date: 20110907
  Transmission Date: 20111222
  Serious: Yes (Other)
  Sender: FDA-Public Use
  Company Number: CA-JNJFOC-20110900172

PATIENT
  Sex: Male
  Weight: 117 kg

DRUGS (10)
  1. REMICADE [Suspect]
     Indication: ANKYLOSING SPONDYLITIS
     Route: 042
     Dates: start: 20001002
  2. ATENOLOL [Concomitant]
     Dosage: GTTS
     Route: 065
  3. FOLIC ACID [Concomitant]
     Route: 048
  4. OXYCET [Concomitant]
     Dosage: 5/325 MG
     Route: 048
  5. REMICADE [Suspect]
     Route: 042
     Dates: start: 20110830
  6. KETOROLAC TROMETHAMINE [Concomitant]
     Dosage: DROPS PER MINUTE
     Route: 065
  7. HYZAAR [Concomitant]
     Dosage: 100/25 MG
     Route: 048
  8. ATENOLOL [Concomitant]
     Route: 065
  9. METHOTREXATE [Concomitant]
     Dosage: GTTS
     Route: 048
  10. PANTOPRAZOLE [Concomitant]
     Route: 048

REACTIONS (6)
  - BLOOD PRESSURE INCREASED [None]
  - PANCREATITIS [None]
  - HEADACHE [None]
  - FATIGUE [None]
  - ADRENAL DISORDER [None]
  - BLOOD GLUCOSE ABNORMAL [None]
